FAERS Safety Report 24577754 (Version 1)
Quarter: 2024Q4

REPORT INFORMATION
  Report Type: Spontaneous
  Country: IL (occurrence: IL)
  Receive Date: 20241104
  Receipt Date: 20241104
  Transmission Date: 20250115
  Serious: Yes (Death, Hospitalization, Other)
  Sender: MERCK
  Company Number: IL-009507513-2411ISR000383

PATIENT
  Age: 77 Year
  Sex: Male

DRUGS (1)
  1. BCG LIVE [Suspect]
     Active Substance: BACILLUS CALMETTE-GUERIN SUBSTRAIN TICE LIVE ANTIGEN
     Indication: Bladder cancer
     Dosage: UNK
     Route: 043
     Dates: end: 202108

REACTIONS (2)
  - Infectious pleural effusion [Fatal]
  - Tuberculous pleurisy [Fatal]

NARRATIVE: CASE EVENT DATE: 20220201
